FAERS Safety Report 9325400 (Version 1)
Quarter: 2013Q2

REPORT INFORMATION
  Report Type: Spontaneous
  Country: CN (occurrence: CN)
  Receive Date: 20130604
  Receipt Date: 20130604
  Transmission Date: 20140414
  Serious: Yes (Other)
  Sender: FDA-Public Use
  Company Number: CN-PFIZER INC-2013167496

PATIENT
  Age: 42 Year
  Sex: Female

DRUGS (3)
  1. CORDARONE [Suspect]
     Indication: ARRHYTHMIA
     Dosage: 0.2G DAILY
     Route: 048
     Dates: start: 20120907, end: 20120911
  2. GINKGO BILOBA LEAF EXTRACT [Concomitant]
     Dosage: UNK
     Dates: start: 201209, end: 20120911
  3. DIPYRIDAMOLE [Concomitant]
     Dosage: 20ML ONCE DAILY
     Dates: start: 201209, end: 20120911

REACTIONS (4)
  - Gastric ulcer [Recovered/Resolved]
  - Abdominal discomfort [Recovered/Resolved]
  - Vomiting [Recovered/Resolved]
  - Nausea [Recovered/Resolved]
